FAERS Safety Report 6676571-1 (Version None)
Quarter: 2010Q2

REPORT INFORMATION
  Report Type: 
  Country: None (occurrence: None)
  Receive Date: 20100412
  Receipt Date: 20100330
  Transmission Date: 20101027
  Serious: Yes (Hospitalization)
  Sender: FDA-Public Use
  Company Number: GB-BAUSCH-2010BL001745

PATIENT
  Age: 67 Year
  Sex: Female

DRUGS (6)
  1. DEXAMETHASONE [Suspect]
     Indication: PROPHYLAXIS OF NAUSEA AND VOMITING
  2. FLUOROURACIL [Suspect]
     Indication: ANAL CANCER
     Route: 042
  3. MITOMYCIN C [Suspect]
     Indication: ANAL CANCER
     Route: 042
  4. THERAPEUTIC RADIOPHARMACEUTICALS [Suspect]
     Indication: ANAL CANCER
  5. ACYCLOVIR SODIUM [Concomitant]
     Indication: ANTIVIRAL PROPHYLAXIS
  6. COTRIM [Concomitant]
     Indication: DRUG USE FOR UNKNOWN INDICATION

REACTIONS (6)
  - DYSPNOEA [None]
  - LARYNGEAL INFLAMMATION [None]
  - ORAL CANDIDIASIS [None]
  - RESPIRATORY MONILIASIS [None]
  - SKIN EXFOLIATION [None]
  - STRIDOR [None]
